FAERS Safety Report 10700629 (Version 2)
Quarter: 2015Q1

REPORT INFORMATION
  Report Type: Spontaneous
  Country: KR (occurrence: KR)
  Receive Date: 20150109
  Receipt Date: 20150330
  Transmission Date: 20150721
  Serious: Yes (Hospitalization)
  Sender: FDA-Public Use
  Company Number: KR-OTSUKA-US-2015-10032

PATIENT

DRUGS (10)
  1. DACOGEN [Suspect]
     Active Substance: DECITABINE
     Indication: ACUTE MYELOID LEUKAEMIA
     Dosage: 20 MG/M2, 1 IN
     Route: 042
     Dates: start: 20141002, end: 20141004
  2. INVANZ [Concomitant]
     Active Substance: ERTAPENEM SODIUM
     Dosage: 1000 MG, 1 IN
     Dates: start: 20141028, end: 20141109
  3. BANAN [Concomitant]
     Active Substance: CEFPODOXIME PROXETIL
     Indication: URINARY TRACT INFECTION
     Dosage: 100 MG, 2 IN
     Route: 048
     Dates: start: 20141012, end: 20141015
  4. SULBACTAM SODIUM [Concomitant]
     Active Substance: SULBACTAM SODIUM
     Indication: URINARY TRACT INFECTION
     Dosage: 3000 MG, 4 IN
     Route: 042
     Dates: start: 20141001, end: 20141002
  5. INVANZ [Concomitant]
     Active Substance: ERTAPENEM SODIUM
     Indication: URINARY TRACT INFECTION
     Dosage: 1000 MG, 1 IN
     Route: 042
     Dates: start: 20141002, end: 20141011
  6. SPORANOX [Concomitant]
     Active Substance: ITRACONAZOLE\SODIUM CHLORIDE
     Indication: PROPHYLAXIS
     Dosage: 100 MG, 2 IN
     Route: 048
     Dates: start: 20141031, end: 20141209
  7. DACOGEN [Suspect]
     Active Substance: DECITABINE
     Dosage: 20 MG/M2, 1 IN
     Route: 042
     Dates: start: 20141205, end: 20141209
  8. CITOPCIN [Concomitant]
     Indication: PROPHYLAXIS
     Dosage: 250 MG, 1 IN
     Route: 048
     Dates: start: 20141110, end: 20141209
  9. INVANZ [Concomitant]
     Active Substance: ERTAPENEM SODIUM
     Dosage: 500 MG, 1 IN
     Route: 042
     Dates: start: 20141027, end: 20141027
  10. DACOGEN [Suspect]
     Active Substance: DECITABINE
     Dosage: 20 MG/M2, 1 IN
     Route: 042
     Dates: start: 20141031, end: 20141104

REACTIONS (2)
  - Pseudomembranous colitis [Recovered/Resolved]
  - Cough [Recovered/Resolved]

NARRATIVE: CASE EVENT DATE: 20141027
